FAERS Safety Report 15401513 (Version 1)
Quarter: 2018Q3

REPORT INFORMATION
  Report Type: Spontaneous
  Country: US (occurrence: US)
  Receive Date: 20180914
  Receipt Date: 20180914
  Transmission Date: 20181010
  Serious: Yes (Death)
  Sender: FDA-Public Use
  Company Number: None

PATIENT
  Age: 72 Year
  Sex: Male
  Weight: 81 kg

DRUGS (9)
  1. SIMVASTATIN. [Concomitant]
     Active Substance: SIMVASTATIN
  2. VALSARTAN 160 MG/ HYDROCHLOROTHIA ZIDE 25MG [Suspect]
     Active Substance: HYDROCHLOROTHIAZIDE\VALSARTAN
     Indication: HYPERTENSION
     Dosage: ?          QUANTITY:90 TABLET(S);?
     Route: 048
     Dates: start: 20180604, end: 20180606
  3. GARLIC. [Concomitant]
     Active Substance: GARLIC
  4. DUTASTERIDE. [Concomitant]
     Active Substance: DUTASTERIDE
  5. MAGNESIUM [Concomitant]
     Active Substance: MAGNESIUM
  6. METFORMIN [Concomitant]
     Active Substance: METFORMIN HYDROCHLORIDE
  7. POTASSIUM CL ER [Concomitant]
     Active Substance: POTASSIUM CHLORIDE
  8. CENTRUM [Concomitant]
     Active Substance: VITAMINS
  9. RABEPRAZOLE [Concomitant]
     Active Substance: RABEPRAZOLE

REACTIONS (4)
  - Thrombosis [None]
  - Malaise [None]
  - Product substitution issue [None]
  - Dizziness [None]

NARRATIVE: CASE EVENT DATE: 20180606
